FAERS Safety Report 21675306 (Version 1)
Quarter: 2022Q4

REPORT INFORMATION
  Report Type: Spontaneous
  Country: BE (occurrence: BE)
  Receive Date: 20221202
  Receipt Date: 20221202
  Transmission Date: 20230113
  Serious: Yes (Disabling)
  Sender: FDA-Public Use
  Company Number: None

PATIENT
  Age: 43 Year
  Sex: Female
  Weight: 66 kg

DRUGS (2)
  1. KYLEENA [Suspect]
     Active Substance: LEVONORGESTREL
     Indication: Contraception
     Dosage: 17.5?G/DAY
     Route: 015
     Dates: end: 20221027
  2. KYLEENA [Suspect]
     Active Substance: LEVONORGESTREL
     Indication: Endometriosis

REACTIONS (11)
  - Cervical radiculopathy [Recovered/Resolved]
  - Muscle spasms [Recovered/Resolved]
  - Hot flush [Recovering/Resolving]
  - Back pain [Recovering/Resolving]
  - Nausea [Recovering/Resolving]
  - Abdominal pain [Recovering/Resolving]
  - Anxiety [Recovered/Resolved]
  - Migraine [Recovered/Resolved]
  - Depression [Recovering/Resolving]
  - Insomnia [Recovered/Resolved]
  - Visual impairment [Recovered/Resolved]
